FAERS Safety Report 11982599 (Version 6)
Quarter: 2018Q1

REPORT INFORMATION
  Report Type: Report from Study
  Country: NL (occurrence: NL)
  Receive Date: 20160201
  Receipt Date: 20180323
  Transmission Date: 20180508
  Serious: Yes (Death, Hospitalization)
  Sender: FDA-Public Use
  Company Number: PHHY2016NL012117

PATIENT
  Age: 65 Year
  Sex: Male

DRUGS (5)
  1. COMPARATOR PEGVISOMANT [Suspect]
     Active Substance: PEGVISOMANT
     Indication: ACROMEGALY
     Dosage: 160 MG, QW
     Route: 058
     Dates: start: 20160502
  2. LANREOTIDE [Concomitant]
     Active Substance: LANREOTIDE
     Indication: ACROMEGALY
     Dosage: 160 MG, EVERY 4 WEEK
     Route: 065
     Dates: start: 20160502
  3. INSULIN [Concomitant]
     Active Substance: INSULIN NOS
     Dosage: FOUR TIMES DAILY (3 TIMES/DAY SHORT ACTING INSULIN AND ONCE DAILY LONG ACTING INSULIN)
     Route: 065
  4. INSULIN [Concomitant]
     Active Substance: INSULIN NOS
     Indication: TYPE 1 DIABETES MELLITUS
     Dosage: TWICE DAILY
     Route: 065
  5. PASIREOTIDE. [Suspect]
     Active Substance: PASIREOTIDE
     Indication: ACROMEGALY
     Dosage: 60 MG
     Route: 030
     Dates: start: 20160111, end: 20160404

REACTIONS (2)
  - Hyperglycaemia [Recovered/Resolved]
  - Myocardial infarction [Fatal]

NARRATIVE: CASE EVENT DATE: 20160123
